FAERS Safety Report 20023479 (Version 2)
Quarter: 2021Q4

REPORT INFORMATION
  Report Type: Spontaneous
  Country: TR (occurrence: TR)
  Receive Date: 20211102
  Receipt Date: 20211109
  Transmission Date: 20220303
  Serious: Yes (Hospitalization)
  Sender: FDA-Public Use
  Company Number: TR-TEVA-2021-TR-1968987

PATIENT
  Age: 81 Year
  Sex: Female

DRUGS (9)
  1. RASAGILINE [Suspect]
     Active Substance: RASAGILINE
     Indication: Dementia with Lewy bodies
     Dosage: 1 MILLIGRAM DAILY;
     Route: 065
  2. BENSERAZIDE\LEVODOPA [Suspect]
     Active Substance: BENSERAZIDE\LEVODOPA
     Indication: Parkinsonism
     Dosage: 375 MILLIGRAM DAILY; RECEIVED THRICE DAILY
     Route: 065
  3. BENSERAZIDE\LEVODOPA [Suspect]
     Active Substance: BENSERAZIDE\LEVODOPA
     Indication: Dementia
     Dosage: 562.5 MILLIGRAM DAILY;
     Route: 065
  4. BENSERAZIDE\LEVODOPA [Suspect]
     Active Substance: BENSERAZIDE\LEVODOPA
     Indication: Dementia with Lewy bodies
  5. PIRIBEDIL [Suspect]
     Active Substance: PIRIBEDIL
     Indication: Dementia with Lewy bodies
     Dosage: 25 MG, 1 IN HALF DAY
     Route: 065
  6. DONEPEZIL [Concomitant]
     Active Substance: DONEPEZIL
     Indication: Dementia
     Dosage: 5 MILLIGRAM DAILY;
     Route: 065
  7. DONEPEZIL [Concomitant]
     Active Substance: DONEPEZIL
     Indication: Parkinsonism
  8. PRIMIDONE [Concomitant]
     Active Substance: PRIMIDONE
     Indication: Dementia
     Dosage: 125 MILLIGRAM DAILY;
     Route: 065
  9. PRIMIDONE [Concomitant]
     Active Substance: PRIMIDONE
     Indication: Parkinsonism

REACTIONS (2)
  - Pleurothotonus [Recovered/Resolved]
  - Drug ineffective [Unknown]
